FAERS Safety Report 10504785 (Version 1)
Quarter: 2014Q4

REPORT INFORMATION
  Report Type: Spontaneous
  Country: US (occurrence: US)
  Receive Date: 20141008
  Receipt Date: 20141008
  Transmission Date: 20150528
  Serious: No
  Sender: FDA-Public Use
  Company Number: US-009507513-1410USA003714

PATIENT
  Sex: Female

DRUGS (2)
  1. JANUMET [Suspect]
     Active Substance: METFORMIN HYDROCHLORIDE\SITAGLIPTIN PHOSPHATE
     Indication: DIABETES MELLITUS
     Dosage: ONE FULL TABLET (ALSO REPORTED AS 500), UNK
     Route: 048
     Dates: end: 201409
  2. JANUMET [Suspect]
     Active Substance: METFORMIN HYDROCHLORIDE\SITAGLIPTIN PHOSPHATE
     Dosage: 0.5 DF, UNK
     Route: 048
     Dates: start: 201409, end: 201410

REACTIONS (6)
  - Wrong technique in drug usage process [Unknown]
  - Dysphemia [Unknown]
  - Inappropriate schedule of drug administration [Unknown]
  - Tremor [Unknown]
  - Adverse event [Unknown]
  - Weight decreased [Unknown]

NARRATIVE: CASE EVENT DATE: 20140923
